FAERS Safety Report 7452335 (Version 6)
Quarter: 2013Q2

REPORT INFORMATION
  Report Type: Report from Study
  Country: AU (occurrence: AU)
  Receive Date: 20100702
  Receipt Date: 20130617
  Transmission Date: 20140414
  Serious: Yes (Hospitalization)
  Sender: FDA-Public Use
  Company Number: AU-ROCHE-685172

PATIENT
  Age: 65 Year
  Sex: Male
  Weight: 87.6 kg

DRUGS (22)
  1. CAPECITABINE [Suspect]
     Indication: RECTAL CANCER
     Dosage: LAST DOSE PRIOR TO SAE ON 8 FEB 2010.
     Route: 048
  2. OXALIPLATIN [Suspect]
     Indication: RECTAL CANCER
     Dosage: LAST DOSE PRIOR TO SAE ON 10 FEB 2010.
     Route: 042
  3. ONDANSETRON [Concomitant]
     Indication: NAUSEA
     Route: 048
  4. ONDANSETRON [Concomitant]
     Dosage: IV STAT
     Route: 048
  5. ONDANSETRON [Concomitant]
     Dosage: DOSE: ORAL
     Route: 048
     Dates: start: 20100210, end: 20100212
  6. ONDANSETRON [Concomitant]
     Dosage: 1 AS NECESSARY
     Route: 048
     Dates: start: 20100616, end: 20100618
  7. LOPERAMIDE [Concomitant]
     Indication: DIARRHOEA
     Route: 048
  8. LOPERAMIDE [Concomitant]
     Route: 048
  9. LOPERAMIDE [Concomitant]
     Dosage: I6 STAT DOSES
     Route: 048
     Dates: start: 20100211, end: 20100215
  10. LOPERAMIDE [Concomitant]
     Route: 048
  11. PARACETAMOL [Concomitant]
     Indication: PAIN
     Route: 048
  12. PARACETAMOL [Concomitant]
     Route: 048
     Dates: start: 20100211, end: 20100216
  13. OXYCONTIN [Concomitant]
     Indication: PAIN
     Route: 048
  14. OXYCONTIN [Concomitant]
     Route: 048
     Dates: start: 20100210, end: 20100216
  15. URAL [Concomitant]
     Indication: CYSTITIS
     Dosage: DOSE: 1 SACHET.
     Route: 048
  16. URAL [Concomitant]
     Route: 048
     Dates: start: 20100211, end: 20100216
  17. ENDONE [Concomitant]
     Route: 048
  18. ENDONE [Concomitant]
     Dosage: STAT DOSE
     Route: 048
     Dates: start: 20100213, end: 20100213
  19. MAXOLON [Concomitant]
     Indication: NAUSEA
     Dosage: FREQUENCY: PRN
     Route: 048
  20. MAXOLON [Concomitant]
     Route: 048
  21. NITRAZEPAM [Concomitant]
     Indication: INSOMNIA
     Route: 048
  22. DEXAMETHASONE [Concomitant]
     Indication: NAUSEA
     Route: 048
     Dates: start: 20100105, end: 20100216

REACTIONS (5)
  - Vomiting [Recovered/Resolved]
  - Diarrhoea [Recovered/Resolved]
  - Duodenal perforation [Recovered/Resolved with Sequelae]
  - Nausea [Not Recovered/Not Resolved]
  - Decreased appetite [Not Recovered/Not Resolved]
